FAERS Safety Report 10370309 (Version 1)
Quarter: 2014Q1

REPORT INFORMATION
  Report Type: Spontaneous
  Country: US (occurrence: None)
  Receive Date: 20140306
  Receipt Date: 20140306
  Transmission Date: 20141002
  Serious: Yes (Other)
  Sender: FDA-Public Use
  Company Number: 163-21880-13072017

PATIENT
  Age: 57 Year
  Sex: Male
  Weight: 77.11 kg

DRUGS (5)
  1. REVLIMID [Suspect]
     Indication: PLASMA CELL MYELOMA
     Route: 048
     Dates: start: 20110730
  2. LIPITOR [Concomitant]
  3. VITAMIN B12 [Concomitant]
  4. ASPIRIN E. C [Concomitant]
  5. MULTIVITAMINS (MULTIVITAMINS) (CAPSULES) [Concomitant]

REACTIONS (2)
  - Osteomyelitis [None]
  - Exposed bone in jaw [None]
